FAERS Safety Report 21839895 (Version 2)
Quarter: 2023Q1

REPORT INFORMATION
  Report Type: Spontaneous
  Country: US (occurrence: US)
  Receive Date: 20230110
  Receipt Date: 20230301
  Transmission Date: 20230418
  Serious: Yes (Other)
  Sender: FDA-Public Use
  Company Number: US-JNJFOC-20230109112

PATIENT
  Age: 3 Decade
  Sex: Female

DRUGS (6)
  1. ELMIRON [Suspect]
     Active Substance: PENTOSAN POLYSULFATE SODIUM
     Indication: Cystitis interstitial
     Route: 048
     Dates: start: 2004
  2. ELMIRON [Suspect]
     Active Substance: PENTOSAN POLYSULFATE SODIUM
     Dosage: 2 CAPSULES TWICE A DAY
     Route: 048
     Dates: start: 2005, end: 2009
  3. ELMIRON [Suspect]
     Active Substance: PENTOSAN POLYSULFATE SODIUM
     Dosage: IN VARYING FREQUENCY OF THRICE A DAY, TWICE A DAY AND ONCE A DAY
     Route: 048
     Dates: end: 201803
  4. ELMIRON [Suspect]
     Active Substance: PENTOSAN POLYSULFATE SODIUM
     Dosage: IN VARYING FREQUENCY OF THRICE A DAY, TWICE A DAY AND ONCE A DAY
     Route: 048
     Dates: end: 201903
  5. ELMIRON [Suspect]
     Active Substance: PENTOSAN POLYSULFATE SODIUM
     Dosage: AS REQUIRED HAD TAKEN TWO TIMES IN LAST 6 MONTHS
     Route: 048
     Dates: end: 2019
  6. NITROFURANTOIN [Concomitant]
     Active Substance: NITROFURANTOIN
     Indication: Infection prophylaxis
     Dates: start: 2005

REACTIONS (4)
  - Retinal dystrophy [Unknown]
  - Maculopathy [Not Recovered/Not Resolved]
  - Generalised anxiety disorder [Not Recovered/Not Resolved]
  - Off label use [Unknown]

NARRATIVE: CASE EVENT DATE: 20050101
